FAERS Safety Report 23873056 (Version 1)
Quarter: 2024Q2

REPORT INFORMATION
  Report Type: Spontaneous
  Country: PL (occurrence: PL)
  Receive Date: 20240520
  Receipt Date: 20240520
  Transmission Date: 20240716
  Serious: Yes (Death, Life-Threatening, Hospitalization, Other)
  Sender: FDA-Public Use
  Company Number: PL-MLMSERVICE-20240502-PI047733-00218-4

PATIENT
  Age: 80 Year
  Sex: Female

DRUGS (1)
  1. METHOTREXATE [Suspect]
     Active Substance: METHOTREXATE
     Indication: Rheumatoid arthritis
     Dosage: 25 MG INSTRUCTION TO TAKE THE MEDICATION1 X1. THE PRESCRIPTION DID NOT EXPLAIN WHET

REACTIONS (10)
  - Toxicity to various agents [Fatal]
  - Overdose [Fatal]
  - Product communication issue [Fatal]
  - Acute respiratory failure [Fatal]
  - Fungal infection [Fatal]
  - Thrombocytopenia [Fatal]
  - Pulmonary infarction [Fatal]
  - Leukopenia [Fatal]
  - Malaise [Fatal]
  - Diarrhoea [Fatal]
